FAERS Safety Report 10648622 (Version 1)
Quarter: 2014Q4

REPORT INFORMATION
  Report Type: Spontaneous
  Country: US (occurrence: None)
  Receive Date: 20141205
  Receipt Date: 20141205
  Transmission Date: 20150529
  Serious: No
  Sender: FDA-Public Use
  Company Number: None

PATIENT
  Age: 69 Year
  Sex: Male
  Weight: 113.4 kg

DRUGS (29)
  1. TESTOSTERONE CYPIONATE(TESTOSTERONE CIPIONATE)(UNKNOWN) [Concomitant]
  2. AMOX TR-POTASSIUM CLAVULANATE(SPEKTRAMOX) [Concomitant]
  3. ALENDRONATE SODIUM(ALENDRONATE SODIUM) (UNKNOWN) [Concomitant]
  4. POMALYST [Suspect]
     Active Substance: POMALIDOMIDE
     Indication: PLASMA CELL MYELOMA
     Dosage: 21 IN 21 D
     Route: 048
     Dates: start: 20130516, end: 2013
  5. PROCHLORPERAZINE(PROCHLORPERAZINE) (TABLETS) [Concomitant]
  6. ASPIRIN(ACETYLSALICYLIC ACID) (CHEWABLE TABLET) [Concomitant]
  7. OMEPRAZOLE DR(OMEPRAZOLE) (CAPSULES) [Concomitant]
  8. ZOLPIDEM TARTRATE(ZOLPIDEM TARTRATE) (TABLETS) [Concomitant]
  9. VITAMIN D3(COLECALCIFEROL) (UNKNOWN) [Concomitant]
  10. VALTREX(VALACICLOVIR HYDROCHLORIDE) (CAPLET) [Concomitant]
  11. WARFARIN SODIUM(WARFARIN SODIUM) (TABLETS) [Concomitant]
  12. ONDANSETRON HCL(ONDANSETRON HYDROCHLORIDE) [Concomitant]
  13. CYMBALTA(DULOXETINE HYDROCHLORIDE)(UNKNOWN) [Concomitant]
  14. TRIAMCINOLONE(TRIAMCINOLONE) (CREAM) [Concomitant]
  15. CYCLOBENZAPRINE HCL(CYCLOBENZAPRINE HYDROCHLORIDE) (TABLETS) [Concomitant]
  16. TRETINOIN(TRETINOIN) (CREAM) [Concomitant]
  17. ANDROGEL(TESTOSTERONE) (UNKNOWN) [Concomitant]
  18. FIBERCON(POLYCARBOPHIL CALCIUM) (UNKNOWN) [Concomitant]
  19. FERROUS SULFATE(FERROUS SULFATE) [Concomitant]
  20. FERROUS GLUCONATE(FERROUS GLUCONATE) (UNKNOWN) [Concomitant]
  21. ZOMETA(ZOLEDRONIC ACID) (INJECTION) [Concomitant]
  22. DEXAMETHASONE(DEXAMETHASONE) (TABLETS) [Concomitant]
  23. LEVOFLOXACIN(LEVOFLOXACIN) (UNKNOWN) [Concomitant]
  24. CALCIUM 600 +D(LEKOVIT CA) (TABLETS) [Concomitant]
  25. IRON(IRON)(UNKNOWN) [Concomitant]
  26. CELEBREX(CELECOXIB) (CAPSULES) [Concomitant]
  27. OXYCODONE/ACETAMINOPHEN(OXYCOCET) (UNKNOWN) [Concomitant]
  28. RANITIDINE HCL(RANITIDINE HYDROCHLORIDE) [Concomitant]
  29. LYRICA(PREGABALIN) (CAPSULES) [Concomitant]

REACTIONS (7)
  - Rash [None]
  - Neuropathy peripheral [None]
  - Paraesthesia [None]
  - Peripheral swelling [None]
  - Dry throat [None]
  - Hypoaesthesia [None]
  - Asthenia [None]

NARRATIVE: CASE EVENT DATE: 201305
